FAERS Safety Report 6907897-1 (Version None)
Quarter: 2010Q3

REPORT INFORMATION
  Report Type: 
  Country: None (occurrence: None)
  Receive Date: 20100805
  Receipt Date: 20100723
  Transmission Date: 20110219
  Serious: Yes (Hospitalization, Other)
  Sender: FDA-Public Use
  Company Number: PHHY2010DE48337

PATIENT
  Age: 2 Year

DRUGS (5)
  1. CYCLOSPORINE [Suspect]
     Indication: LIVER TRANSPLANT
     Dosage: 50 MG/M2
     Route: 042
  2. BASILIXIMAB [Suspect]
     Indication: LIVER TRANSPLANT
     Dosage: 10 MG, TWO DOSES ON DAY 0 AND 4
  3. PREDNISONE [Suspect]
     Indication: LIVER TRANSPLANT
     Dosage: 15 MG/ M2
  4. PREDNISONE [Suspect]
     Dosage: 10 MG/M2
  5. ZANAMIVIR [Suspect]
     Indication: H1N1 INFLUENZA
     Dosage: 2 X 260 MG/DAY
     Route: 042

REACTIONS (16)
  - ACUTE RESPIRATORY DISTRESS SYNDROME [None]
  - ALANINE AMINOTRANSFERASE INCREASED [None]
  - ASPARTATE AMINOTRANSFERASE INCREASED [None]
  - BLOOD CREATININE INCREASED [None]
  - H1N1 INFLUENZA [None]
  - HEPATIC FUNCTION ABNORMAL [None]
  - IMPAIRED GASTRIC EMPTYING [None]
  - INFLUENZA A VIRUS TEST POSITIVE [None]
  - LEUKOPENIA [None]
  - LUNG INFILTRATION [None]
  - MECHANICAL VENTILATION [None]
  - PAO2/FIO2 RATIO DECREASED [None]
  - PYREXIA [None]
  - RENAL IMPAIRMENT [None]
  - RESPIRATORY DISORDER [None]
  - RETROGRADE PORTAL VEIN FLOW [None]
